FAERS Safety Report 10015276 (Version 3)
Quarter: 2014Q2

REPORT INFORMATION
  Report Type: Spontaneous
  Country: US (occurrence: US)
  Receive Date: 20140317
  Receipt Date: 20140612
  Transmission Date: 20141212
  Serious: Yes (Other)
  Sender: FDA-Public Use
  Company Number: US-PFIZER INC-2014075072

PATIENT
  Age: 79 Year
  Sex: Male
  Weight: 82.54 kg

DRUGS (4)
  1. AMIODARONE HCL [Suspect]
     Indication: CARDIAC DISORDER
     Dosage: 20 MG, DAILY
     Dates: start: 201311
  2. AMIODARONE HCL [Suspect]
     Indication: HEART RATE IRREGULAR
  3. ELIQUIS [Concomitant]
     Dosage: 5 MG, TIWCE DAILY
  4. PRAVASTATIN [Concomitant]
     Indication: BLOOD CHOLESTEROL ABNORMAL
     Dosage: 20 MG, UNK

REACTIONS (1)
  - Heart rate irregular [Unknown]
